FAERS Safety Report 8356876-9 (Version None)
Quarter: 2012Q2

REPORT INFORMATION
  Report Type: 
  Country: None (occurrence: None)
  Receive Date: 20120514
  Receipt Date: 20120502
  Transmission Date: 20120825
  Serious: Yes (Death, Hospitalization)
  Sender: FDA-Public Use
  Company Number: US-PFIZER INC-2012108100

PATIENT
  Age: 67 Year
  Sex: Male
  Weight: 49.9 kg

DRUGS (13)
  1. POTASSIUM [Concomitant]
  2. SODIUM PHOSPHATE [Concomitant]
  3. POTASSIUM CHLORIDE [Concomitant]
  4. TEMSIROLIMUS [Suspect]
     Indication: NEOPLASM MALIGNANT
     Dosage: 25 MG, CYCLIC, ON DAYS 1,8, 15, 22 OF EACH 28 DAYS CYCLE
     Route: 042
     Dates: start: 20111216, end: 20120330
  5. SIMVASTATIN [Concomitant]
  6. ZOLPIDEM [Concomitant]
  7. ACETYLSALICYLIC ACID [Concomitant]
  8. MORPHINE [Concomitant]
  9. METOPROLOL [Concomitant]
  10. ZOFRAN [Concomitant]
  11. NEXIUM [Concomitant]
  12. AVASTIN [Suspect]
     Indication: NEOPLASM MALIGNANT
     Dosage: 10 MG/KG (500 MG), CYCLIC, OVER 30-90 MIN ON DAYS 1 AND 15 OF EACH 28 DAYS CYCLE
     Route: 042
     Dates: start: 20111216, end: 20120309
  13. PROMETHAZINE [Concomitant]

REACTIONS (1)
  - CARDIAC ARREST [None]
